FAERS Safety Report 9352416 (Version 1)
Quarter: 2013Q2

REPORT INFORMATION
  Report Type: Other
  Country: BG (occurrence: BG)
  Receive Date: 20130617
  Receipt Date: 20130617
  Transmission Date: 20140414
  Serious: Yes (Life-Threatening)
  Sender: FDA-Public Use
  Company Number: BG-ACTAVIS-2013-11093

PATIENT
  Age: 62 Year
  Sex: Female

DRUGS (3)
  1. DOCETAXEL (UNKNOWN) [Suspect]
     Indication: BREAST CANCER METASTATIC
     Dosage: 100 MG/M2, EVERY TRIMESTER
     Route: 042
  2. ZOFRAN                             /00955301/ [Concomitant]
     Indication: ANTIEMETIC SUPPORTIVE CARE
     Dosage: 8 MG, DAILY
  3. DEXAMETHASONE [Concomitant]
     Indication: PREMEDICATION
     Route: 065

REACTIONS (2)
  - Necrotising colitis [Unknown]
  - Condition aggravated [Unknown]
